FAERS Safety Report 4490829-6 (Version None)
Quarter: 2004Q4

REPORT INFORMATION
  Report Type: 
  Country: None (occurrence: None)
  Receive Date: 20041027
  Receipt Date: 20041015
  Transmission Date: 20050328
  Serious: Yes (Hospitalization)
  Sender: FDA-Public Use
  Company Number: 2004UW21069

PATIENT
  Sex: Female

DRUGS (2)
  1. IRESSA [Suspect]
     Dates: start: 20040801, end: 20041004
  2. GABAPENTIN [Concomitant]

REACTIONS (7)
  - ASTHENIA [None]
  - DEPRESSED LEVEL OF CONSCIOUSNESS [None]
  - DRUG INEFFECTIVE [None]
  - HEPATOMEGALY [None]
  - JAUNDICE [None]
  - SPINAL CORD NEOPLASM [None]
  - URINARY RETENTION [None]
